FAERS Safety Report 18699027 (Version 1)
Quarter: 2021Q1

REPORT INFORMATION
  Report Type: Spontaneous
  Country: PL (occurrence: PL)
  Receive Date: 20210104
  Receipt Date: 20210104
  Transmission Date: 20210419
  Serious: Yes (Other)
  Sender: FDA-Public Use
  Company Number: PL-PFIZER INC-2020519250

PATIENT
  Age: 58 Year
  Sex: Female

DRUGS (5)
  1. TAMOXIFEN [Concomitant]
     Active Substance: TAMOXIFEN
  2. RAMIPRIL. [Suspect]
     Active Substance: RAMIPRIL
     Indication: HYPERTENSION
     Dosage: 10 MG
  3. FLUOROURACIL. [Suspect]
     Active Substance: FLUOROURACIL
  4. DOXORUBICIN HCL [Suspect]
     Active Substance: DOXORUBICIN HYDROCHLORIDE
  5. METFORMIN [Suspect]
     Active Substance: METFORMIN HYDROCHLORIDE
     Indication: TYPE 2 DIABETES MELLITUS
     Dosage: 500 MG, TID

REACTIONS (14)
  - Breast mass [Unknown]
  - Anaemia [Unknown]
  - Neoplasm progression [Unknown]
  - Aspartate aminotransferase increased [Unknown]
  - Neutropenia [Recovering/Resolving]
  - Bone pain [Recovering/Resolving]
  - Femur fracture [Unknown]
  - Alanine aminotransferase increased [Unknown]
  - Bone lesion [Unknown]
  - Hepatotoxicity [Recovered/Resolved]
  - Breast pain [Unknown]
  - Asthenia [Unknown]
  - Neoplasm progression [Unknown]
  - Weight decreased [Unknown]

NARRATIVE: CASE EVENT DATE: 201909
